FAERS Safety Report 19646523 (Version 5)
Quarter: 2021Q4

REPORT INFORMATION
  Report Type: Report from Study
  Country: US (occurrence: US)
  Receive Date: 20210802
  Receipt Date: 20211211
  Transmission Date: 20220303
  Serious: Yes (Hospitalization, Other)
  Sender: FDA-Public Use
  Company Number: NVSC2021US125532

PATIENT
  Sex: Female

DRUGS (1)
  1. ENTRESTO [Suspect]
     Active Substance: SACUBITRIL\VALSARTAN
     Indication: Cardiac failure
     Dosage: 1 DF, BID (24.26MG)
     Route: 065

REACTIONS (6)
  - Pneumothorax [Unknown]
  - Localised infection [Unknown]
  - Illness [Unknown]
  - Medical device pain [Unknown]
  - Medical device site swelling [Unknown]
  - Asthenia [Unknown]
